FAERS Safety Report 7628715-2 (Version None)
Quarter: 2011Q3

REPORT INFORMATION
  Report Type: 
  Country: None (occurrence: None)
  Receive Date: 20110722
  Receipt Date: 20110709
  Transmission Date: 20111222
  Serious: Yes (Other)
  Sender: FDA-Public Use
  Company Number: US-UCBSA-035191

PATIENT
  Sex: Female
  Weight: 61.23 kg

DRUGS (5)
  1. ENTOCORT EC [Concomitant]
     Indication: CROHN'S DISEASE
     Route: 048
     Dates: start: 20100101
  2. CIMZIA [Suspect]
     Dosage: SAME LOT NO. TAKEN ON 10-JUN-2011, 09-JUL-2011
     Route: 058
     Dates: start: 20110415
  3. VITAMIN AND MINERAL PRENATAL SUPPLEMENT W/ FOLIC ACID CAP [Concomitant]
     Indication: PREGNANCY
     Dosage: ONE TABLET ONCE A DAY
     Route: 048
  4. CIMZIA [Suspect]
     Route: 058
     Dates: start: 20110513
  5. CIMZIA [Suspect]
     Indication: CROHN'S DISEASE
     Route: 058
     Dates: start: 20101223

REACTIONS (3)
  - PSORIASIS [None]
  - POLYMORPHIC LIGHT ERUPTION [None]
  - PREGNANCY [None]
